FAERS Safety Report 9932755 (Version 1)
Quarter: 2014Q1

REPORT INFORMATION
  Report Type: Spontaneous
  Country: US (occurrence: US)
  Receive Date: 20140228
  Receipt Date: 20140228
  Transmission Date: 20141002
  Serious: No
  Sender: FDA-Public Use
  Company Number: US-GLAXOSMITHKLINE-A1027459A

PATIENT
  Age: 47 Year
  Sex: Female

DRUGS (4)
  1. LAMOTRIGINE [Suspect]
     Indication: BIPOLAR II DISORDER
     Dosage: 400MG PER DAY
     Route: 048
     Dates: start: 2009, end: 2009
  2. PROZAC [Concomitant]
  3. XANAX XR [Concomitant]
  4. PREMARIN [Concomitant]

REACTIONS (3)
  - Affect lability [Recovered/Resolved]
  - Mood swings [Unknown]
  - Insomnia [Unknown]
